FAERS Safety Report 9613485 (Version 2)
Quarter: 2013Q4

REPORT INFORMATION
  Report Type: Spontaneous
  Country: GB (occurrence: GB)
  Receive Date: 20131010
  Receipt Date: 20131111
  Transmission Date: 20140711
  Serious: Yes (Hospitalization, Other)
  Sender: FDA-Public Use
  Company Number: GB-TEVA-437255ISR

PATIENT
  Age: 58 Year
  Sex: Male

DRUGS (14)
  1. TRAMADOL [Suspect]
     Indication: PAIN
     Dosage: 150 MILLIGRAM DAILY; 150 MG TOTAL DAILY DOSE
     Route: 048
     Dates: start: 20130805, end: 20130827
  2. TRAMADOL [Suspect]
     Indication: TOOTH ABSCESS
     Dosage: 150 MILLIGRAM DAILY; 150 MG TOTAL DAILY DOSE
     Route: 048
     Dates: start: 20130805, end: 20130827
  3. INCIVO [Suspect]
     Indication: HEPATITIS C
     Route: 048
     Dates: start: 20130531, end: 20130805
  4. COPEGUS [Suspect]
     Indication: HEPATITIS C
     Dosage: 1200 MILLIGRAM DAILY; DOSAGE FORM: UNSPECIFIED
     Route: 048
     Dates: start: 20130503, end: 20130605
  5. COPEGUS [Suspect]
     Indication: HEPATITIS C
     Dosage: 1000 MILLIGRAM DAILY; DOSAGE FORM: UNSPECIFIED
     Route: 048
     Dates: start: 20130605, end: 20130610
  6. COPEGUS [Suspect]
     Indication: HEPATITIS C
     Dosage: 400 MILLIGRAM DAILY; DOSAGE FORM: UNSPECIFIED
     Route: 048
     Dates: start: 20130617, end: 20130625
  7. COPEGUS [Suspect]
     Indication: HEPATITIS C
     Dosage: 200 MILLIGRAM DAILY; DOSAGE FORM: UNSPECIFIED
     Route: 048
     Dates: start: 20130719, end: 20130830
  8. COPEGUS [Suspect]
     Indication: HEPATITIS C
     Dosage: 800 MILLIGRAM DAILY; DOSAGE FORM: UNSPECIFIED
     Route: 048
     Dates: start: 20130610, end: 20130617
  9. PEGYLATED INTERFERON NOS [Suspect]
     Indication: HEPATITIS C
     Dosage: 200 MILLIGRAM DAILY; DOSAGE FORM: TABLET
     Route: 048
     Dates: start: 20130419, end: 20130823
  10. PEGASYS [Suspect]
     Route: 058
     Dates: start: 20130503, end: 20130823
  11. FLUOXETINE [Concomitant]
     Indication: DEPRESSION
     Dosage: 40 MILLIGRAM DAILY; DOSAGE FORM: CAPSULE
     Route: 048
     Dates: start: 20130417
  12. FUROSEMIDE [Concomitant]
     Indication: ASCITES
     Dosage: 80 MILLIGRAM DAILY; DOSAGE FORM: TABLET
     Route: 048
     Dates: start: 20120102
  13. PROPRANOLOL [Concomitant]
     Indication: ASCITES
     Dosage: 80 MILLIGRAM DAILY; DOSAGE FORM: PROLONGED-RELEASE CAPSULE
     Route: 048
     Dates: start: 20120102
  14. PARACETAMOL [Concomitant]
     Indication: ANALGESIC THERAPY
     Dosage: 500 MILLIGRAM DAILY;
     Route: 048

REACTIONS (9)
  - Hallucination [Recovered/Resolved]
  - Psychotic disorder [Recovered/Resolved]
  - Hypokalaemia [Unknown]
  - Anaemia [Unknown]
  - Thrombocytopenia [Unknown]
  - Oedema peripheral [Unknown]
  - Nausea [Unknown]
  - Memory impairment [Unknown]
  - Malnutrition [Unknown]
